FAERS Safety Report 5450265-2 (Version None)
Quarter: 2007Q3

REPORT INFORMATION
  Report Type: 
  Country: None (occurrence: None)
  Receive Date: 20070912
  Receipt Date: 20070904
  Transmission Date: 20080115
  Serious: Yes (Other)
  Sender: FDA-Public Use
  Company Number: US-AMGEN-US233805

PATIENT
  Sex: Female

DRUGS (9)
  1. PROCRIT [Suspect]
     Indication: ANAEMIA OF MALIGNANT DISEASE
     Dates: start: 20060701, end: 20070601
  2. ISORDIL [Concomitant]
  3. SPIRIVA [Concomitant]
  4. COREG [Concomitant]
  5. INSULIN [Concomitant]
  6. HYDRALAZINE HCL [Concomitant]
  7. MAGNESIUM OXIDE [Concomitant]
  8. DIGOXIN [Concomitant]
  9. NEURONTIN [Concomitant]

REACTIONS (1)
  - APLASIA PURE RED CELL [None]
